FAERS Safety Report 9097103 (Version 1)
Quarter: 2013Q1

REPORT INFORMATION
  Report Type: Spontaneous
  Country: GB (occurrence: None)
  Receive Date: 20130123
  Receipt Date: 20130123
  Transmission Date: 20140127
  Serious: Yes (Other)
  Sender: FDA-Public Use
  Company Number: AUR-APL-2013-00791

PATIENT
  Age: 16 Year
  Sex: Female

DRUGS (6)
  1. RISPERIDONE (RISPERIDONE) [Suspect]
     Indication: ANXIETY
     Dosage: 0.5 MG, ORAL
     Route: 048
     Dates: start: 2008, end: 2012
  2. RISPERIDONE (RISPERIDONE) [Suspect]
     Indication: AGGRESSION
     Dosage: 0.5 MG, ORAL
     Route: 048
     Dates: start: 2008, end: 2012
  3. ABILIFY (ARIPIPRAZOLE) [Suspect]
     Indication: ANXIETY
     Dosage: 2.5 MG, ORAL
     Dates: start: 2011, end: 2012
  4. ABILIFY (ARIPIPRAZOLE) [Suspect]
     Indication: AGGRESSION
     Dosage: 2.5 MG, ORAL
     Dates: start: 2011, end: 2012
  5. BIO-MELATONIN (MELATONIN) [Concomitant]
  6. FLUOXETINE (FLUOXETINE) [Concomitant]

REACTIONS (3)
  - Dystonia [None]
  - Muscle twitching [None]
  - Withdrawal syndrome [None]
